FAERS Safety Report 5762627-4 (Version None)
Quarter: 2008Q2

REPORT INFORMATION
  Report Type: 
  Country: None (occurrence: None)
  Receive Date: 20080609
  Receipt Date: 20080521
  Transmission Date: 20081010
  Serious: No
  Sender: FDA-Public Use
  Company Number: US-BAYER-200823781NA

PATIENT
  Age: 67 Year
  Sex: Female
  Weight: 59 kg

DRUGS (1)
  1. MAGNEVIST [Suspect]
     Indication: MASS
     Route: 042
     Dates: start: 20071102, end: 20071102

REACTIONS (2)
  - INJECTION SITE EXTRAVASATION [None]
  - INJECTION SITE PAIN [None]
